FAERS Safety Report 6933744 (Version 5)
Quarter: 2019Q2

REPORT INFORMATION
  Report Type: Spontaneous
  Country: US (occurrence: US)
  Receive Date: 20090311
  Receipt Date: 20190406
  Transmission Date: 20190711
  Serious: Yes (Other)
  Sender: FDA-Public Use
  Company Number: US-ROCHE-618633

PATIENT
  Age: 18 Year
  Sex: Male

DRUGS (1)
  1. ACCUTANE [Suspect]
     Active Substance: ISOTRETINOIN
     Indication: ACNE
     Route: 065
     Dates: start: 200704, end: 200708

REACTIONS (2)
  - Intentional self-injury [Unknown]
  - Homicide [Unknown]

NARRATIVE: CASE EVENT DATE: 20070815
